FAERS Safety Report 20793649 (Version 2)
Quarter: 2022Q2

REPORT INFORMATION
  Report Type: Report from Study
  Country: US (occurrence: None)
  Receive Date: 20220506
  Receipt Date: 20220517
  Transmission Date: 20220721
  Serious: Yes (Other)
  Sender: FDA-Public Use
  Company Number: US-ROCHE-3087727

PATIENT
  Age: 47 Year
  Sex: Female
  Weight: 76.3 kg

DRUGS (46)
  1. PLACEBO [Suspect]
     Active Substance: UNSPECIFIED INGREDIENT
     Indication: Relapsing-remitting multiple sclerosis
     Dosage: WEEK 1.?AS PER PROTOCOL: INTRAVENOUS (IV) INFUSIONS ON DAYS 1 AND 15 FOR THE FIRST DOSE AND AS A SIN
     Route: 042
     Dates: start: 20130122, end: 20130122
  2. PLACEBO [Suspect]
     Active Substance: UNSPECIFIED INGREDIENT
     Dosage: WEEK 2.
     Route: 042
     Dates: start: 20130205, end: 20130205
  3. PLACEBO [Suspect]
     Active Substance: UNSPECIFIED INGREDIENT
     Dosage: WEEK 24. (INTERRUPTED DUE TO PUMP MALFUNCTION).
     Route: 042
     Dates: start: 20130709, end: 20130709
  4. PLACEBO [Suspect]
     Active Substance: UNSPECIFIED INGREDIENT
     Dosage: WEEK 48.
     Route: 042
     Dates: start: 20131218, end: 20131218
  5. PLACEBO [Suspect]
     Active Substance: UNSPECIFIED INGREDIENT
     Dosage: WEEK 72.
     Route: 042
     Dates: start: 20140610, end: 20140610
  6. INTERFERON BETA-1A [Suspect]
     Active Substance: INTERFERON BETA-1A
     Indication: Relapsing-remitting multiple sclerosis
     Route: 058
     Dates: start: 20130122
  7. INTERFERON BETA-1A [Suspect]
     Active Substance: INTERFERON BETA-1A
     Route: 058
     Dates: start: 20130220, end: 20130318
  8. OCRELIZUMAB [Suspect]
     Active Substance: OCRELIZUMAB
     Indication: Relapsing-remitting multiple sclerosis
     Dosage: OLE-WEEK 0. ?ADDITIONAL TREATMENT DATE: 22/DEC/2014 (OLE-WEEK 2)
     Route: 042
     Dates: start: 20141208, end: 20141208
  9. OCRELIZUMAB [Suspect]
     Active Substance: OCRELIZUMAB
     Dosage: OLE-WEEK 24.?ADDITIONAL TREATMENT DATES: 10/NOV/2015 (OLE-WEEK 48), 26/APR/2016 (OLE-WEEK 72), 11/OC
     Route: 042
     Dates: start: 20150526, end: 20150526
  10. ACETAMINOPHEN [Concomitant]
     Active Substance: ACETAMINOPHEN
     Dosage: 05/FEB/2013, 09/JUL/2013, 18/DEC/2013, 10/JUN/2014, 08/DEC/2014, 22/DEC/2014, 26MAY2015, 10/NOV/2015
     Dates: start: 20130122
  11. DIPHENHYDRAMINE [Concomitant]
     Active Substance: DIPHENHYDRAMINE
     Dosage: 05/FEB/2013, 09/JUL/2013, 18/DEC/2013, 10/JUN/2014, 08/DEC/2014, 22/DEC/2014, 26MAY2015, 10/NOV/2015
     Dates: start: 20130122
  12. METHYLPREDNISOLONE [Concomitant]
     Active Substance: METHYLPREDNISOLONE
     Dosage: 05/FEB/2013, 09/JUL/2013, 18/DEC/2013, 10/JUN/2014, 08/DEC/2014, 22/DEC/2014, 26MAY2015, 10/NOV/2015
     Dates: start: 20130122
  13. BENADRYL [Concomitant]
     Active Substance: DIPHENHYDRAMINE HYDROCHLORIDE
     Dates: start: 20170322
  14. CEFDINIR [Concomitant]
     Active Substance: CEFDINIR
     Indication: Acute sinusitis
     Dosage: 08/MAY/2020
     Dates: start: 20191206
  15. CLINDAMYCIN [Concomitant]
     Active Substance: CLINDAMYCIN
     Dates: start: 20200508
  16. AMOXICILLIN [Concomitant]
     Active Substance: AMOXICILLIN
     Dates: start: 20210818
  17. LORAZEPAM [Concomitant]
     Active Substance: LORAZEPAM
     Indication: Anxiety
     Dates: start: 202105
  18. ZOLPIDEM [Concomitant]
     Active Substance: ZOLPIDEM TARTRATE
     Indication: Anxiety
     Dates: start: 2018
  19. TRAZODONE [Concomitant]
     Active Substance: TRAZODONE HYDROCHLORIDE
     Indication: Anxiety
     Dates: start: 20190424
  20. ADVAIR DISKUS [Concomitant]
     Active Substance: FLUTICASONE PROPIONATE\SALMETEROL XINAFOATE
     Indication: Asthma
     Dates: start: 2010
  21. ALBUTEROL [Concomitant]
     Active Substance: ALBUTEROL
     Indication: Asthma
     Dates: start: 2012
  22. PERCOCET [Concomitant]
     Active Substance: ACETAMINOPHEN\OXYCODONE HYDROCHLORIDE
     Indication: Back pain
     Dates: start: 201212
  23. ZANAFLEX [Concomitant]
     Active Substance: TIZANIDINE HYDROCHLORIDE
     Indication: Back pain
     Dates: start: 20130109
  24. SPRINTEC [Concomitant]
     Active Substance: ETHINYL ESTRADIOL\NORGESTIMATE
     Dates: start: 20130103
  25. MUCINEX [Concomitant]
     Active Substance: GUAIFENESIN
     Dates: start: 20210718
  26. MODERNA COVID-19 VACCINE [Concomitant]
     Active Substance: ELASOMERAN
     Indication: COVID-19 prophylaxis
     Dates: start: 20210316
  27. AMITRIPTYLINE [Concomitant]
     Active Substance: AMITRIPTYLINE
     Indication: Depression
     Dates: start: 2020
  28. PRISTIQ EXTENDED-RELEASE [Concomitant]
     Active Substance: DESVENLAFAXINE SUCCINATE
     Indication: Depression
     Dosage: 14/OCT/2013
     Dates: start: 201210
  29. FLUTICASONE PROPIONATE [Concomitant]
     Active Substance: FLUTICASONE PROPIONATE
     Indication: Hypersensitivity
     Dates: start: 1993
  30. LASIX [Concomitant]
     Active Substance: FUROSEMIDE
     Indication: Hypertension
     Dates: start: 20211214
  31. SOLU-MEDROL [Concomitant]
     Active Substance: METHYLPREDNISOLONE SODIUM SUCCINATE
     Dosage: 23/MAY/2021, 09/JAN/2014, 16/NOV/2016,
     Dates: start: 20130408
  32. MEDROL [Concomitant]
     Active Substance: METHYLPREDNISOLONE
     Dates: start: 20190403
  33. LYRICA [Concomitant]
     Active Substance: PREGABALIN
     Dates: start: 201203
  34. CYCLOBENZAPRINE [Concomitant]
     Active Substance: CYCLOBENZAPRINE
     Indication: Muscle spasms
     Dates: start: 202105
  35. AZITHROMYCIN [Concomitant]
     Active Substance: AZITHROMYCIN
     Indication: Phlebitis
     Dates: start: 20211223
  36. AZITHROMYCIN [Concomitant]
     Active Substance: AZITHROMYCIN
     Indication: Cough
  37. AZITHROMYCIN [Concomitant]
     Active Substance: AZITHROMYCIN
     Indication: Wheezing
  38. DOXYCYCLINE [Concomitant]
     Active Substance: DOXYCYCLINE
     Dates: start: 20210523
  39. VENTOLIN [Concomitant]
     Active Substance: ALBUTEROL SULFATE
     Indication: Sinusitis
     Dates: start: 20191206
  40. VITAMIN B12 [Concomitant]
     Active Substance: CYANOCOBALAMIN
     Dates: start: 201211
  41. MEGA D3 [Concomitant]
     Dates: start: 201211
  42. BACTRIM DS [Concomitant]
     Active Substance: SULFAMETHOXAZOLE\TRIMETHOPRIM
     Indication: Urinary tract infection
     Dates: start: 20170707
  43. SULFAMETHOXAZOLE\TRIMETHOPRIM [Concomitant]
     Active Substance: SULFAMETHOXAZOLE\TRIMETHOPRIM
     Indication: Urinary tract infection
     Dates: start: 20210413
  44. SULFAMETHOXAZOLE [Concomitant]
     Active Substance: SULFAMETHOXAZOLE
     Indication: Urinary tract infection
     Dates: start: 20211021
  45. TRIMETHOPRIM [Concomitant]
     Active Substance: TRIMETHOPRIM
     Indication: Urinary tract infection
     Dates: start: 20211021
  46. INFLUENZA VIRUS VACCINE [Concomitant]
     Active Substance: INFLUENZA VIRUS VACCINE
     Indication: Urinary tract infection
     Dates: start: 20161003

REACTIONS (1)
  - Mental status changes [Unknown]

NARRATIVE: CASE EVENT DATE: 20220331
